FAERS Safety Report 8059813-X (Version None)
Quarter: 2012Q1

REPORT INFORMATION
  Report Type: 
  Country: None (occurrence: None)
  Receive Date: 20120120
  Receipt Date: 20120116
  Transmission Date: 20120608
  Serious: Yes (Hospitalization)
  Sender: FDA-Public Use
  Company Number: US-ABBOTT-12P-163-0893155-00

PATIENT
  Age: 28 Year
  Sex: Female

DRUGS (1)
  1. HUMIRA [Suspect]
     Indication: PRODUCT USED FOR UNKNOWN INDICATION

REACTIONS (6)
  - VOMITING [None]
  - CROHN'S DISEASE [None]
  - GASTROINTESTINAL INFECTION [None]
  - MALAISE [None]
  - SKIN DISORDER [None]
  - WHITE BLOOD CELL COUNT INCREASED [None]
